FAERS Safety Report 8349686-X (Version None)
Quarter: 2012Q2

REPORT INFORMATION
  Report Type: 
  Country: None (occurrence: None)
  Receive Date: 20120510
  Receipt Date: 20120503
  Transmission Date: 20120825
  Serious: Yes (Death, Hospitalization)
  Sender: FDA-Public Use
  Company Number: DE-CELGENEUS-062-21660-12040193

PATIENT
  Age: 76 Year
  Sex: Female
  Weight: 65 kg

DRUGS (3)
  1. NEULASTA [Concomitant]
     Route: 065
     Dates: start: 20120329, end: 20120329
  2. CAPECITABINE [Suspect]
     Indication: BREAST CANCER
     Route: 048
     Dates: start: 20120314, end: 20120327
  3. ABRAXANE [Suspect]
     Indication: BREAST CANCER
     Route: 041
     Dates: start: 20120314, end: 20120328

REACTIONS (2)
  - FEBRILE NEUTROPENIA [None]
  - DIARRHOEA [None]
